FAERS Safety Report 8991871 (Version 2)
Quarter: 2013Q3

REPORT INFORMATION
  Report Type: Report from Study
  Country: TR (occurrence: TR)
  Receive Date: 20121231
  Receipt Date: 20130723
  Transmission Date: 20140515
  Serious: Yes (Hospitalization)
  Sender: FDA-Public Use
  Company Number: PHHO2012TR018627

PATIENT
  Age: 35 Year
  Sex: Female
  Weight: 61 kg

DRUGS (3)
  1. FTY [Suspect]
     Indication: MULTIPLE SCLEROSIS
     Dosage: 0.5 MG, QD
     Route: 048
     Dates: start: 20110406
  2. CIPRALEX                                /DEN/ [Concomitant]
     Indication: DEPRESSION
     Dosage: 15 MG, UNK
     Dates: start: 20120802
  3. DIMENHYDRINATE [Concomitant]
     Dosage: 150 MG, QD
     Dates: start: 20121217

REACTIONS (1)
  - Vertigo [Recovered/Resolved with Sequelae]
